FAERS Safety Report 5818416-5 (Version None)
Quarter: 2008Q3

REPORT INFORMATION
  Report Type: 
  Country: None (occurrence: None)
  Receive Date: 20080716
  Receipt Date: 20080701
  Transmission Date: 20090109
  Serious: Yes (Other)
  Sender: FDA-Public Use
  Company Number: 2008S1011939

PATIENT
  Age: 73 Year
  Sex: Female

DRUGS (6)
  1. AMLODIPINE [Suspect]
     Indication: HYPERTENSION
     Dosage: 10 MG; DAILY
  2. AMILORIDE + HYDROCHLOROTHIAZIDE (MODURETIC) [Suspect]
     Indication: HYPERTENSION
     Dosage: 5 MG; DAILY; 50 MG; DAILY
  3. SIMVASTATIN (CON.) [Concomitant]
  4. ATENOLOL (CON.) [Concomitant]
  5. NIFEDIPINE (CON.) [Concomitant]
  6. LEVOTHYROXINE (CON.) [Concomitant]

REACTIONS (9)
  - BLOOD POTASSIUM DECREASED [None]
  - CELLULITIS [None]
  - DIZZINESS POSTURAL [None]
  - HEART RATE DECREASED [None]
  - HYPONATRAEMIA [None]
  - HYPOVOLAEMIA [None]
  - LOSS OF CONSCIOUSNESS [None]
  - ORTHOSTATIC HYPOTENSION [None]
  - PITTING OEDEMA [None]
